FAERS Safety Report 7374121-8 (Version None)
Quarter: 2011Q1

REPORT INFORMATION
  Report Type: 
  Country: None (occurrence: None)
  Receive Date: 20110325
  Receipt Date: 20110225
  Transmission Date: 20110831
  Serious: No
  Sender: FDA-Public Use
  Company Number: US-B.I. PHARMACEUTICALS,INC./RIDGEFIELD-2011-BP-07060BP

PATIENT
  Sex: Male

DRUGS (10)
  1. METOPROLOL [Concomitant]
     Dosage: 50 MG
     Route: 048
  2. LANTUS [Concomitant]
     Indication: DIABETES MELLITUS
     Dosage: 55 RT
     Route: 058
  3. POTASSIUM CHLORIDE [Concomitant]
     Dosage: 20 MEQ
     Route: 048
  4. FUROSEMIDE [Concomitant]
     Dosage: 40 MG
     Route: 048
  5. PANTOPRAZOLE [Concomitant]
     Dosage: 20 MG
     Route: 048
  6. ASPIRIN [Concomitant]
     Dosage: 81 MG
     Route: 048
  7. AMIODARONE HCL [Concomitant]
     Dosage: 200 MG
     Route: 048
  8. CRESTOR [Concomitant]
     Indication: BLOOD CHOLESTEROL INCREASED
     Dosage: 20 MG
     Route: 048
  9. PRADAXA [Suspect]
     Indication: ATRIAL FIBRILLATION
     Dosage: 300 MG
     Route: 048
     Dates: start: 20110201
  10. PLAVIX [Concomitant]
     Dosage: 75 MG
     Route: 048

REACTIONS (9)
  - WEIGHT DECREASED [None]
  - HAEMORRHAGIC DIATHESIS [None]
  - ASTHENIA [None]
  - TONGUE COATED [None]
  - DYSPNOEA [None]
  - FATIGUE [None]
  - SENSATION OF FOREIGN BODY [None]
  - HAEMATOCHEZIA [None]
  - SWOLLEN TONGUE [None]
